FAERS Safety Report 14081363 (Version 3)
Quarter: 2018Q1

REPORT INFORMATION
  Report Type: Spontaneous
  Country: US (occurrence: US)
  Receive Date: 20171012
  Receipt Date: 20180105
  Transmission Date: 20180508
  Serious: No
  Sender: FDA-Public Use
  Company Number: US-ACTELION-A-NJ2017-160797

PATIENT
  Age: 54 Year
  Sex: Male

DRUGS (3)
  1. SILDENAFIL. [Concomitant]
     Active Substance: SILDENAFIL
     Dosage: 20 MG, TID
     Dates: start: 20131127
  2. ORENITRAM [Concomitant]
     Active Substance: TREPROSTINIL
     Dosage: 4.5 MG, TID
     Route: 048
     Dates: start: 20170920
  3. OPSUMIT [Suspect]
     Active Substance: MACITENTAN
     Indication: PULMONARY ARTERIAL HYPERTENSION
     Dosage: 10 MG, QD
     Route: 048
     Dates: start: 20140312

REACTIONS (7)
  - Swelling face [Unknown]
  - Pain [Unknown]
  - Joint swelling [Unknown]
  - Headache [Unknown]
  - Vomiting [Unknown]
  - Eye swelling [Unknown]
  - Peripheral swelling [Unknown]

NARRATIVE: CASE EVENT DATE: 201712
